FAERS Safety Report 7825842-1 (Version None)
Quarter: 2011Q4

REPORT INFORMATION
  Report Type: 
  Country: None (occurrence: None)
  Receive Date: 20111019
  Receipt Date: 20111017
  Transmission Date: 20120403
  Serious: Yes (Hospitalization)
  Sender: FDA-Public Use
  Company Number: ES-ROCHE-718269

PATIENT
  Sex: Male
  Weight: 80 kg

DRUGS (3)
  1. TEMOZOLOMIDE [Suspect]
     Indication: GLIOBLASTOMA
     Dosage: LAST DOSE PRIOR TO SAE: 03/JUL/2010
     Route: 048
     Dates: start: 20100322, end: 20100728
  2. KEPPRA [Concomitant]
  3. TEMOZOLOMIDE [Suspect]
     Route: 048

REACTIONS (1)
  - MENINGITIS [None]
